FAERS Safety Report 25406038 (Version 1)
Quarter: 2025Q2

REPORT INFORMATION
  Report Type: Spontaneous
  Country: US (occurrence: US)
  Receive Date: 20250606
  Receipt Date: 20250606
  Transmission Date: 20250717
  Serious: Yes (Hospitalization)
  Sender: NOVITIUM PHARMA
  Company Number: US-NOVITIUMPHARMA-2025USNVP01296

PATIENT
  Age: 16 Year
  Sex: Female

DRUGS (16)
  1. PREDNISONE [Suspect]
     Active Substance: PREDNISONE
     Indication: Still^s disease
  2. PREDNISONE [Suspect]
     Active Substance: PREDNISONE
     Indication: Graft versus host disease
  3. ETANERCEPT [Concomitant]
     Active Substance: ETANERCEPT
     Indication: Still^s disease
  4. TOCILIZUMAB [Concomitant]
     Active Substance: TOCILIZUMAB
     Indication: Still^s disease
  5. ADALIMUMAB [Concomitant]
     Active Substance: ADALIMUMAB
     Indication: Still^s disease
  6. CANAKINUMAB [Concomitant]
     Active Substance: CANAKINUMAB
     Indication: Still^s disease
  7. CANAKINUMAB [Concomitant]
     Active Substance: CANAKINUMAB
  8. CYCLOSPORINE [Concomitant]
     Active Substance: CYCLOSPORINE
     Indication: Still^s disease
  9. LEFLUNOMIDE [Concomitant]
     Active Substance: LEFLUNOMIDE
     Indication: Still^s disease
  10. HYDROXYCHLOROQUINE [Concomitant]
     Active Substance: HYDROXYCHLOROQUINE
     Indication: Still^s disease
  11. ALEMTUZUMAB [Concomitant]
     Active Substance: ALEMTUZUMAB
     Indication: Allogenic bone marrow transplantation therapy
     Route: 058
  12. FLUDARABINE [Concomitant]
     Active Substance: FLUDARABINE PHOSPHATE
     Indication: Allogenic bone marrow transplantation therapy
  13. MELPHALAN [Concomitant]
     Active Substance: MELPHALAN
     Indication: Allogenic bone marrow transplantation therapy
  14. TACROLIMUS [Concomitant]
     Active Substance: TACROLIMUS
     Indication: Prophylaxis against graft versus host disease
  15. METHYLPREDNISOLONE [Concomitant]
     Active Substance: METHYLPREDNISOLONE
     Indication: Prophylaxis against graft versus host disease
  16. ANAKINRA [Concomitant]
     Active Substance: ANAKINRA
     Indication: Prophylaxis against graft versus host disease

REACTIONS (1)
  - Epstein-Barr virus infection [Unknown]
